FAERS Safety Report 5230485-2 (Version None)
Quarter: 2007Q1

REPORT INFORMATION
  Report Type: 
  Country: None (occurrence: None)
  Receive Date: 20070202
  Receipt Date: 20070124
  Transmission Date: 20070707
  Serious: Yes (Other)
  Sender: FDA-Public Use
  Company Number: SPV1-200700298

PATIENT
  Age: 8 Year
  Sex: Male
  Weight: 24 kg

DRUGS (1)
  1. ADDERALL 10 [Suspect]
     Dosage: 1X/DAY:QD, ORAL
     Route: 048

REACTIONS (2)
  - COUGH [None]
  - RASH MACULO-PAPULAR [None]
